FAERS Safety Report 12262162 (Version 1)
Quarter: 2016Q2

REPORT INFORMATION
  Report Type: Spontaneous
  Country: US (occurrence: None)
  Receive Date: 20160412
  Receipt Date: 20160412
  Transmission Date: 20160815
  Serious: Yes (Hospitalization)
  Sender: FDA-Public Use
  Company Number: None

PATIENT
  Age: 50 Year
  Sex: Male
  Weight: 99.5 kg

DRUGS (1)
  1. XELODA [Suspect]
     Active Substance: CAPECITABINE
     Dates: end: 20151217

REACTIONS (3)
  - Rectal haemorrhage [None]
  - Chills [None]
  - Abdominal wound dehiscence [None]

NARRATIVE: CASE EVENT DATE: 20160328
